FAERS Safety Report 6403065-0 (Version None)
Quarter: 2009Q4

REPORT INFORMATION
  Report Type: 
  Country: None (occurrence: None)
  Receive Date: 20091016
  Receipt Date: 20091016
  Transmission Date: 20100525
  Serious: No
  Sender: FDA-Public Use
  Company Number: None

PATIENT
  Age: 55 Year
  Sex: Male

DRUGS (1)
  1. TRANXENE [Suspect]
     Indication: ANXIETY DISORDER
     Dosage: 15 MG 1-2 BID PRN PO
     Route: 048
     Dates: start: 20080822

REACTIONS (1)
  - DRUG INEFFECTIVE [None]
